FAERS Safety Report 9699858 (Version 1)
Quarter: 2013Q4

REPORT INFORMATION
  Report Type: Spontaneous
  Country: US (occurrence: US)
  Receive Date: 20131121
  Receipt Date: 20131121
  Transmission Date: 20140711
  Serious: Yes (Hospitalization)
  Sender: FDA-Public Use
  Company Number: US-009507513-1311USA004658

PATIENT
  Age: 17 Year
  Sex: Female

DRUGS (2)
  1. NUVARING [Suspect]
     Indication: CONTRACEPTION
     Dosage: ONE RING / THREE WEEKS
     Route: 067
     Dates: start: 20131027, end: 20131106
  2. CONCERTA [Concomitant]

REACTIONS (3)
  - Vaginal haemorrhage [Recovered/Resolved]
  - Device expulsion [Unknown]
  - Uterine disorder [Unknown]
